FAERS Safety Report 11461911 (Version 1)
Quarter: 2015Q3

REPORT INFORMATION
  Report Type: Spontaneous
  Country: US (occurrence: US)
  Receive Date: 20150831
  Receipt Date: 20150831
  Transmission Date: 20151125
  Serious: No
  Sender: FDA-Public Use
  Company Number: US-ELI_LILLY_AND_COMPANY-US201009003223

PATIENT
  Sex: Female

DRUGS (4)
  1. XANAX [Concomitant]
     Active Substance: ALPRAZOLAM
     Dosage: 1 MG, 2/D
  2. METHADONE [Concomitant]
     Active Substance: METHADONE HYDROCHLORIDE
     Dosage: 10 MG, 3/D
  3. CYMBALTA [Suspect]
     Active Substance: DULOXETINE HYDROCHLORIDE
     Indication: MIGRAINE
     Dosage: 120 MG, DAILY (1/D)
  4. NORCO [Concomitant]
     Active Substance: ACETAMINOPHEN\HYDROCODONE BITARTRATE
     Dosage: UNK, 4/D

REACTIONS (2)
  - Drug withdrawal syndrome [Not Recovered/Not Resolved]
  - Off label use [Recovered/Resolved]
